FAERS Safety Report 10133436 (Version 2)
Quarter: 2014Q2

REPORT INFORMATION
  Report Type: Spontaneous
  Country: FR (occurrence: FR)
  Receive Date: 20140428
  Receipt Date: 20140428
  Transmission Date: 20141212
  Serious: Yes (Hospitalization, Disabling, Other)
  Sender: FDA-Public Use
  Company Number: PHHY2014FR020206

PATIENT
  Age: 76 Year
  Sex: Male
  Weight: 84 kg

DRUGS (1)
  1. TASIGNA [Suspect]
     Indication: CHRONIC MYELOID LEUKAEMIA
     Dosage: 400 MG, BID
     Route: 048
     Dates: start: 200901

REACTIONS (7)
  - Peripheral arterial occlusive disease [Unknown]
  - Polymyalgia rheumatica [Unknown]
  - Gait disturbance [Unknown]
  - Fear of falling [Unknown]
  - Vascular calcification [Unknown]
  - Arterial disorder [Unknown]
  - Fatigue [Unknown]
